FAERS Safety Report 10870695 (Version 1)
Quarter: 2015Q1

REPORT INFORMATION
  Report Type: Spontaneous
  Country: US (occurrence: US)
  Receive Date: 20150226
  Receipt Date: 20150226
  Transmission Date: 20150721
  Serious: Yes (Hospitalization, Other)
  Sender: FDA-Public Use
  Company Number: US-009507513-1502USA011067

PATIENT
  Age: 60 Year
  Sex: Male

DRUGS (1)
  1. DR. SCHOLLS CORN REMOVERS [Suspect]
     Active Substance: SALICYLIC ACID
     Indication: HYPERKERATOSIS
     Dosage: UNK, UNKNOWN
     Route: 061
     Dates: start: 20150207, end: 20150209

REACTIONS (6)
  - Localised infection [Not Recovered/Not Resolved]
  - Skin discolouration [Unknown]
  - Pain in extremity [Unknown]
  - Erythema [Unknown]
  - Limb operation [Unknown]
  - Peripheral swelling [Unknown]

NARRATIVE: CASE EVENT DATE: 201502
